FAERS Safety Report 24248020 (Version 1)
Quarter: 2024Q3

REPORT INFORMATION
  Report Type: Spontaneous
  Country: US (occurrence: None)
  Receive Date: 20240823
  Receipt Date: 20240823
  Transmission Date: 20241016
  Serious: No
  Sender: Public
  Company Number: None

PATIENT
  Age: 50 Year
  Sex: Female

DRUGS (2)
  1. GLIMEPIRIDE [Suspect]
     Active Substance: GLIMEPIRIDE
  2. INSULIN HUMAN [Suspect]
     Active Substance: INSULIN HUMAN

REACTIONS (14)
  - Hyperphagia [None]
  - Polyuria [None]
  - Weight decreased [None]
  - Vision blurred [None]
  - Neuropathy peripheral [None]
  - Underdose [None]
  - Hyperglycaemic hyperosmolar nonketotic syndrome [None]
  - Exposure during pregnancy [None]
  - Product prescribing error [None]
  - Product prescribing error [None]
  - Incorrect dose administered [None]
  - Wrong product administered [None]
  - Product communication issue [None]
  - Hypersensitivity [None]
